FAERS Safety Report 9611043 (Version 3)
Quarter: 2014Q2

REPORT INFORMATION
  Report Type: Report from Study
  Country: US (occurrence: US)
  Receive Date: 20131009
  Receipt Date: 20140401
  Transmission Date: 20141212
  Serious: Yes (Hospitalization)
  Sender: FDA-Public Use
  Company Number: US-UCBSA-099893

PATIENT
  Age: 63 Year
  Sex: Female
  Weight: 70.7 kg

DRUGS (13)
  1. CIMZIA [Suspect]
     Indication: CROHN^S DISEASE
     Route: 058
     Dates: start: 20120308, end: 2013
  2. CIMZIA [Suspect]
     Indication: CROHN^S DISEASE
     Route: 058
     Dates: start: 20100611, end: 20120130
  3. FOLIC ACID [Concomitant]
     Dosage: DAILY DOSE:2 MG
  4. CIPRO [Concomitant]
     Indication: CROHN^S DISEASE
  5. FLAGYL [Concomitant]
     Indication: CROHN^S DISEASE
  6. AZATHIOPRINE [Concomitant]
     Indication: CROHN^S DISEASE
     Dosage: DAILY DOSE: 50 MG
  7. PLAVIX [Concomitant]
     Dosage: DAILY: 75 MG
  8. IMODIUM A-D [Concomitant]
     Indication: CROHN^S DISEASE
     Dosage: DOSE: 2 MG
  9. VITAMIN B-12 [Concomitant]
     Dosage: STRNGH: 1000 MCG/ML
     Route: 058
  10. LORAZEPAM [Concomitant]
     Dosage: DOSE: 0.5 MG
  11. LOPRESSOR [Concomitant]
     Dosage: DOSE STRENGH: 50 MG
     Route: 048
  12. METAMUCIL [Concomitant]
     Route: 048
  13. ZOCOR [Concomitant]
     Dosage: NIGHTLY

REACTIONS (1)
  - Tooth abscess [Recovered/Resolved]
